FAERS Safety Report 25231042 (Version 1)
Quarter: 2025Q2

REPORT INFORMATION
  Report Type: Spontaneous
  Country: US (occurrence: None)
  Receive Date: 20250423
  Receipt Date: 20250423
  Transmission Date: 20250717
  Serious: Yes (Life-Threatening, Hospitalization)
  Sender: FDA-CTU
  Company Number: None

PATIENT
  Age: 59 Year
  Sex: Female
  Weight: 99 kg

DRUGS (1)
  1. TRUQAP [Suspect]
     Active Substance: CAPIVASERTIB
     Indication: Invasive breast carcinoma
     Dosage: FREQUENCY : TWICE A DAY;?
     Route: 048
     Dates: start: 20250407, end: 20250412

REACTIONS (6)
  - Generalised tonic-clonic seizure [None]
  - Hyperglycaemia [None]
  - Acidosis [None]
  - Pneumonia staphylococcal [None]
  - Intentional product use issue [None]
  - Product communication issue [None]

NARRATIVE: CASE EVENT DATE: 20250413
